FAERS Safety Report 7792911-4 (Version None)
Quarter: 2011Q4

REPORT INFORMATION
  Report Type: 
  Country: None (occurrence: None)
  Receive Date: 20111003
  Receipt Date: 20110919
  Transmission Date: 20120403
  Serious: Yes (Hospitalization, Other)
  Sender: FDA-Public Use
  Company Number: PHHY2011US66046

PATIENT
  Sex: Female

DRUGS (13)
  1. LEVOTHYROXINE SODIUM [Concomitant]
     Dosage: 0.175 MG,DAILY
     Route: 048
  2. COREG [Concomitant]
     Dosage: 3.125 MG, BID
  3. AVANDIA [Concomitant]
     Indication: DIABETES MELLITUS
     Dosage: UNK UKN, UNK
  4. LEXAPRO [Concomitant]
     Indication: DEPRESSION
     Dosage: UNK UKN, UNK
  5. METFORMIN HCL [Concomitant]
     Indication: DIABETES MELLITUS
     Dosage: UNK UKN, UNK
  6. HYDROCODONE BITARTRATE AND ACETAMINOPHEN [Concomitant]
     Dosage: 5 MG, DAILY
     Route: 048
  7. LISINOPRIL [Concomitant]
     Dosage: 40 MG, DAILY
     Route: 048
  8. LASIX [Concomitant]
     Dosage: 20 MG, QD
  9. LIPITOR [Concomitant]
     Indication: DYSLIPIDAEMIA
     Dosage: UNK UKN, UNK
  10. PLAVIX [Concomitant]
     Dosage: 75 MG, DAILY
     Route: 048
  11. SERTRALINE HYDROCHLORIDE [Concomitant]
     Dosage: 100 MG, DAILY
     Route: 048
  12. TASIGNA [Suspect]
     Indication: CHRONIC MYELOID LEUKAEMIA
     Dosage: 400 MG, BID
     Route: 048
     Dates: start: 20110429, end: 20110717
  13. FUROSEMIDE [Concomitant]
     Dosage: 20 MG, DAILY
     Route: 048

REACTIONS (15)
  - DIARRHOEA [None]
  - MALAISE [None]
  - NAUSEA [None]
  - BLOOD GLUCOSE INCREASED [None]
  - ELECTROCARDIOGRAM QT PROLONGED [None]
  - DYSARTHRIA [None]
  - FACIAL PARESIS [None]
  - CHILLS [None]
  - CEREBROVASCULAR ACCIDENT [None]
  - STAPHYLOCOCCAL INFECTION [None]
  - VOMITING [None]
  - ABDOMINAL PAIN [None]
  - URINE COLOUR ABNORMAL [None]
  - DYSPNOEA [None]
  - PRODUCTIVE COUGH [None]
